FAERS Safety Report 9094372 (Version 1)
Quarter: 2013Q1

REPORT INFORMATION
  Report Type: Spontaneous
  Country: US (occurrence: None)
  Receive Date: 20130214
  Receipt Date: 20130214
  Transmission Date: 20140127
  Serious: No
  Sender: FDA-Public Use
  Company Number: None

PATIENT
  Age: 57 Year
  Sex: Male
  Weight: 63.5 kg

DRUGS (2)
  1. NORCO [Suspect]
     Indication: KNEE OPERATION
     Dosage: 1 OR 2   / 4 HRS  ORAL
     Route: 048
     Dates: start: 20130201, end: 20130203
  2. NORCO [Suspect]
     Indication: PAIN
     Dosage: 1 OR 2   / 4 HRS  ORAL
     Route: 048
     Dates: start: 20130201, end: 20130203

REACTIONS (4)
  - Pruritus generalised [None]
  - Insomnia [None]
  - Scratch [None]
  - Irritability [None]
